FAERS Safety Report 8506964 (Version 3)
Quarter: 2012Q4

REPORT INFORMATION
  Report Type: 
  Country: US (occurrence: US)
  Receive Date: 20120412
  Receipt Date: 20121214
  Transmission Date: 20130627
  Serious: No
  Sender: FDA-Public Use
  Company Number: US-ASTRAZENECA-2012SE13406

PATIENT
  Age: 87 Year
  Sex: Female

DRUGS (2)
  1. SYMBICORT PMDI [Suspect]
     Route: 055
  2. NEXIUM [Suspect]
     Dosage: DAILY
     Route: 048

REACTIONS (5)
  - Arthritis [Unknown]
  - Gastric disorder [Unknown]
  - Gastroenteritis viral [Unknown]
  - Hypoaesthesia [Unknown]
  - Intentional drug misuse [Unknown]
